FAERS Safety Report 24624301 (Version 2)
Quarter: 2024Q4

REPORT INFORMATION
  Report Type: Spontaneous
  Country: GB (occurrence: GB)
  Receive Date: 20241115
  Receipt Date: 20241216
  Transmission Date: 20250115
  Serious: Yes (Hospitalization)
  Sender: ABBVIE
  Company Number: GB-ABBVIE-6004936

PATIENT
  Age: 58 Year
  Sex: Female

DRUGS (1)
  1. FOSCARBIDOPA\FOSLEVODOPA [Suspect]
     Active Substance: FOSCARBIDOPA\FOSLEVODOPA
     Indication: Parkinson^s disease
     Dosage: FLOW RATES: MLS/HOUR -BASE : 0.74MLS/HR ,LOW :0.35MLS/HR ,HIGH: 0.75MLS/HR?CANNULA LENGTH:	6MM ?F...
     Route: 058
     Dates: start: 20240805

REACTIONS (2)
  - Infusion site cellulitis [Unknown]
  - Neuropathy peripheral [Unknown]

NARRATIVE: CASE EVENT DATE: 20240101
